FAERS Safety Report 12211089 (Version 2)
Quarter: 2016Q1

REPORT INFORMATION
  Report Type: Spontaneous
  Country: IT (occurrence: IT)
  Receive Date: 20160325
  Receipt Date: 20160331
  Transmission Date: 20160526
  Serious: Yes (Other)
  Sender: FDA-Public Use
  Company Number: IT-PFIZER INC-2016165618

PATIENT
  Age: 24 Year
  Sex: Male

DRUGS (2)
  1. ZOLOFT [Suspect]
     Active Substance: SERTRALINE HYDROCHLORIDE
     Dosage: 100 MG, DAILY
     Route: 048
  2. ZOLOFT [Suspect]
     Active Substance: SERTRALINE HYDROCHLORIDE
     Dosage: 1000 MG, TOTAL (10 TABLETS OF 100 MG)
     Route: 048
     Dates: start: 20160212, end: 20160212

REACTIONS (4)
  - Paraesthesia oral [Recovering/Resolving]
  - Intentional overdose [Recovering/Resolving]
  - Drug abuse [Unknown]
  - Vomiting [Recovering/Resolving]

NARRATIVE: CASE EVENT DATE: 20160212
